FAERS Safety Report 10237771 (Version 1)
Quarter: 2014Q2

REPORT INFORMATION
  Report Type: Spontaneous
  Country: US (occurrence: None)
  Receive Date: 20140612
  Receipt Date: 20140612
  Transmission Date: 20141212
  Serious: No
  Sender: FDA-Public Use
  Company Number: None

PATIENT
  Age: 61 Year
  Sex: Male

DRUGS (6)
  1. SOVALDI [Suspect]
     Indication: HEPATITIS C
     Route: 048
  2. RIBAVIRIN [Suspect]
     Indication: HEPATITIS C
     Route: 048
  3. ATENOLOL [Concomitant]
  4. HYDROCODONE-APAP [Concomitant]
  5. ATENOLOL [Concomitant]
  6. HYDROCODONE-APA[ [Concomitant]

REACTIONS (2)
  - Mood swings [None]
  - Fatigue [None]
